FAERS Safety Report 9015325 (Version 4)
Quarter: 2013Q1

REPORT INFORMATION
  Report Type: Spontaneous
  Country: AU (occurrence: AU)
  Receive Date: 20130116
  Receipt Date: 20130305
  Transmission Date: 20140127
  Serious: Yes (Hospitalization, Disabling, Other)
  Sender: FDA-Public Use
  Company Number: AU-009507513-1301AUS004368

PATIENT
  Age: 21 Year
  Sex: Female
  Weight: 96 kg

DRUGS (1)
  1. IMPLANON NXT [Suspect]
     Indication: CONTRACEPTION
     Dosage: UNK
     Route: 059
     Dates: start: 20121127, end: 20130108

REACTIONS (5)
  - Staphylococcal skin infection [Recovering/Resolving]
  - Implant site pain [Recovered/Resolved]
  - Application site infection [Recovered/Resolved]
  - Application site infection [Recovered/Resolved]
  - Application site infection [Recovered/Resolved]
